FAERS Safety Report 9914590 (Version 2)
Quarter: 2014Q2

REPORT INFORMATION
  Report Type: Spontaneous
  Country: US (occurrence: US)
  Receive Date: 20140220
  Receipt Date: 20140502
  Transmission Date: 20141212
  Serious: Yes (Other)
  Sender: FDA-Public Use
  Company Number: US-PFIZER INC-2014047642

PATIENT
  Age: 56 Year
  Sex: Female
  Weight: 86.17 kg

DRUGS (4)
  1. LYRICA [Suspect]
     Indication: PAIN
     Dosage: UNK
     Dates: start: 2011
  2. LYRICA [Suspect]
     Dosage: 150 MG, 4X/DAY
  3. VICODIN [Suspect]
     Indication: PAIN
     Dosage: (HYDROCODONE BITARTRATE 10MG/ ACETAMINOPHEN 325MG), 4X/DAY
     Dates: start: 2009
  4. PERCOCET [Concomitant]
     Indication: PAIN
     Dosage: (OXYCODONE 10MG/ ACETAMINOPHEN 325MG), 4X/DAY

REACTIONS (3)
  - Foot fracture [Unknown]
  - Balance disorder [Unknown]
  - Fall [Unknown]
